FAERS Safety Report 9840984 (Version 1)
Quarter: 2013Q4

REPORT INFORMATION
  Report Type: Spontaneous
  Country: US (occurrence: None)
  Receive Date: 20131219
  Receipt Date: 20131219
  Transmission Date: 20140711
  Serious: No
  Sender: FDA-Public Use
  Company Number: 163-20785-12100118

PATIENT
  Age: 62 Year
  Sex: Male

DRUGS (8)
  1. THALOMID [Suspect]
     Indication: PLASMA CELL MYELOMA
     Route: 048
     Dates: start: 20120530
  2. ACYCLOVIR (ACICLOVIR) (ACICLOVIR) [Concomitant]
  3. ATENOLOL (ATENOLOL) [Concomitant]
  4. BACTRIM DS (BACTRIM) [Concomitant]
  5. DEXAMETHASONE (DEXAMETHASONE) [Concomitant]
  6. LISINOPRIL (LISINOPRIL) [Concomitant]
  7. PLAVIX (CLOPIDOGREL SULFATE) [Concomitant]
  8. ZOCOR (SIMVASTATIN) [Concomitant]

REACTIONS (1)
  - Plasma cell myeloma [None]
